FAERS Safety Report 5065711-6 (Version None)
Quarter: 2006Q3

REPORT INFORMATION
  Report Type: 
  Country: None (occurrence: None)
  Receive Date: 20060725
  Receipt Date: 20060714
  Transmission Date: 20061208
  Serious: Yes (Hospitalization)
  Sender: FDA-Public Use
  Company Number: ALA_0005_2006

PATIENT
  Age: 17 Year
  Sex: Male

DRUGS (4)
  1. MESALAZINE [Suspect]
     Indication: ILEITIS
     Dosage: 1 G Q8HR PO
     Route: 048
  2. METHYLPREDNISOLONE [Suspect]
     Indication: ILEITIS
     Dosage: 40 MG Q8HR IV
     Route: 042
  3. CEFTRIAXONE [Suspect]
     Indication: ILEITIS
     Dosage: 1 G Q12HR IV
     Route: 042
  4. METRONIDAZOLE [Suspect]
     Indication: ILEITIS
     Dosage: 500 MG Q8HR IV
     Route: 042

REACTIONS (2)
  - IDIOSYNCRATIC DRUG REACTION [None]
  - SINUS BRADYCARDIA [None]
